FAERS Safety Report 7536771-5 (Version None)
Quarter: 2011Q2

REPORT INFORMATION
  Report Type: 
  Country: None (occurrence: None)
  Receive Date: 20110609
  Receipt Date: 20110531
  Transmission Date: 20111010
  Serious: Yes (Hospitalization)
  Sender: FDA-Public Use
  Company Number: BR-ROCHE-752600

PATIENT
  Sex: Female

DRUGS (11)
  1. CYCLOSPORINE [Suspect]
     Route: 048
     Dates: start: 20070213
  2. PREDNISONE [Suspect]
     Route: 065
     Dates: start: 20070209
  3. MYCOPHENOLATE MEFETIL [Suspect]
     Route: 065
     Dates: start: 20090424
  4. CYCLOSPORINE [Suspect]
     Dosage: REDUCED DOSAGE
     Route: 048
     Dates: start: 20110408, end: 20110408
  5. MYCOPHENOLATE MEFETIL [Suspect]
     Route: 065
     Dates: start: 20070207
  6. CYCLOSPORINE [Suspect]
     Dosage: INCREASED DOSAGE
     Route: 048
     Dates: start: 20110413
  7. CYCLOSPORINE [Suspect]
     Route: 048
     Dates: start: 20090428
  8. CYCLOSPORINE [Suspect]
     Dosage: REDUCED DOSAGE
     Route: 048
     Dates: start: 20110409, end: 20110412
  9. CYCLOSPORINE [Suspect]
     Route: 048
     Dates: start: 20101222
  10. PREDNISONE [Suspect]
     Dosage: INCREASED DOSAGE
     Route: 065
     Dates: start: 20110421
  11. PREDNISONE [Suspect]
     Route: 065
     Dates: start: 20080611

REACTIONS (6)
  - THROMBOPHLEBITIS SUPERFICIAL [None]
  - UTERINE CANCER [None]
  - WOUND EVISCERATION [None]
  - PULMONARY TUBERCULOSIS [None]
  - ANAEMIA [None]
  - VAGINAL HAEMORRHAGE [None]
